FAERS Safety Report 9625589 (Version 2)
Quarter: 2013Q4

REPORT INFORMATION
  Report Type: Spontaneous
  Country: US (occurrence: US)
  Receive Date: 20131016
  Receipt Date: 20131016
  Transmission Date: 20140711
  Serious: Yes (Hospitalization, Other)
  Sender: FDA-Public Use
  Company Number: US-SANOFI-AVENTIS-2011SA049791

PATIENT
  Age: 72 Year
  Sex: Male

DRUGS (13)
  1. PLAVIX [Suspect]
     Route: 065
  2. PLAVIX [Suspect]
     Route: 065
  3. INVESTIGATIONAL DRUG [Suspect]
     Indication: TYPE 2 DIABETES MELLITUS
     Route: 065
     Dates: start: 20101110
  4. ASPIRIN [Suspect]
     Dosage: }100MG
     Dates: start: 20101110
  5. ASPIRIN [Suspect]
     Dosage: = { 100MG
     Dates: start: 20110801
  6. ASPIRIN [Suspect]
     Dates: start: 20110126
  7. ASPIRIN [Suspect]
     Dates: start: 20110602
  8. ASPIRIN [Suspect]
     Dates: start: 20110504
  9. METFORMIN [Concomitant]
     Indication: DIABETES MELLITUS
  10. GLIMEPIRIDE [Concomitant]
     Indication: DIABETES MELLITUS
  11. ZAROXOLYN [Concomitant]
     Dates: start: 20110530, end: 20110601
  12. CALCIUM CHANNEL BLOCKERS [Concomitant]
  13. NIACIN [Concomitant]

REACTIONS (5)
  - Carotid artery occlusion [Unknown]
  - Splenic haematoma [Recovered/Resolved]
  - Abdominal pain [Recovered/Resolved]
  - Haemoglobin decreased [Recovered/Resolved]
  - Fall [Unknown]
